FAERS Safety Report 7797512-X (Version None)
Quarter: 2011Q4

REPORT INFORMATION
  Report Type: 
  Country: None (occurrence: None)
  Receive Date: 20111004
  Receipt Date: 20111004
  Transmission Date: 20120403
  Serious: Yes (Hospitalization)
  Sender: FDA-Public Use
  Company Number: None

PATIENT
  Age: 77 Year
  Sex: Female
  Weight: 60 kg

DRUGS (2)
  1. VELCADE [Suspect]
     Indication: MANTLE CELL LYMPHOMA
     Dosage: 2.171 MG WEEKLY X 4 IV
     Route: 042
     Dates: start: 20110531, end: 20110923
  2. TEMSIROLIMUS [Suspect]
     Indication: MANTLE CELL LYMPHOMA
     Dosage: 25 MG WEEKLY X 5 IV
     Route: 042
     Dates: start: 20110531, end: 20110923

REACTIONS (10)
  - FLANK PAIN [None]
  - ANAEMIA [None]
  - URINARY TRACT INFECTION [None]
  - LEUKOCYTOSIS [None]
  - UROSEPSIS [None]
  - ASTHENIA [None]
  - BLOOD CREATININE INCREASED [None]
  - DIARRHOEA [None]
  - MALAISE [None]
  - DECREASED APPETITE [None]
